FAERS Safety Report 6152693-9 (Version None)
Quarter: 2009Q2

REPORT INFORMATION
  Report Type: 
  Country: None (occurrence: None)
  Receive Date: 20090413
  Receipt Date: 20090409
  Transmission Date: 20091009
  Serious: Yes (Hospitalization)
  Sender: FDA-Public Use
  Company Number: US-BIOGENIDEC-2007BI008713

PATIENT
  Age: 47 Year
  Sex: Female
  Weight: 59 kg

DRUGS (3)
  1. TYSABRI [Suspect]
     Indication: MULTIPLE SCLEROSIS
     Route: 042
     Dates: start: 20061115, end: 20080102
  2. SOLU-MEDROL [Concomitant]
     Indication: PROPHYLAXIS
     Route: 042
     Dates: start: 20050101, end: 20060101
  3. TYLENOL [Concomitant]
     Indication: PREMEDICATION
     Dates: start: 20050701

REACTIONS (15)
  - CHOLECYSTITIS INFECTIVE [None]
  - CONTUSION [None]
  - DEHYDRATION [None]
  - DEPRESSED MOOD [None]
  - DYSARTHRIA [None]
  - FALL [None]
  - FATIGUE [None]
  - GENERAL SYMPTOM [None]
  - KIDNEY INFECTION [None]
  - MULTIPLE SCLEROSIS [None]
  - MULTIPLE SCLEROSIS RELAPSE [None]
  - PAIN [None]
  - POOR VENOUS ACCESS [None]
  - REFUSAL OF TREATMENT BY PATIENT [None]
  - SCAPULA FRACTURE [None]
